FAERS Safety Report 9682511 (Version 1)
Quarter: 2013Q4

REPORT INFORMATION
  Report Type: Spontaneous
  Country: IT (occurrence: IT)
  Receive Date: 20131112
  Receipt Date: 20131112
  Transmission Date: 20140711
  Serious: Yes (Other)
  Sender: FDA-Public Use
  Company Number: IT-JNJFOC-20131103273

PATIENT
  Sex: 0

DRUGS (8)
  1. 2-CHLORODEOXYADENOSINE [Suspect]
     Indication: SPLENIC MARGINAL ZONE LYMPHOMA
     Dosage: 6 CYCLES
     Route: 042
  2. RITUXIMAB [Suspect]
     Indication: SPLENIC MARGINAL ZONE LYMPHOMA
     Dosage: INFUSED OVER 3-6 H PERIOD
     Route: 065
  3. ANTI CD20 ANTIBODIES [Suspect]
     Indication: SPLENIC MARGINAL ZONE LYMPHOMA
     Dosage: TOTAL OF 6 CYCLES
     Route: 065
  4. COTRIMOXAZOLE [Concomitant]
     Indication: INFECTION PROPHYLAXIS
     Route: 065
  5. ACYCLOVIR [Concomitant]
     Indication: INFECTION PROPHYLAXIS
     Route: 065
  6. FLUCONAZOLE [Concomitant]
     Indication: INFECTION PROPHYLAXIS
     Route: 065
  7. DIPHENHYDRAMINE [Concomitant]
     Indication: PREMEDICATION
     Route: 048
  8. ACETAMINOPHEN [Concomitant]
     Indication: PREMEDICATION
     Route: 048

REACTIONS (2)
  - Gastric cancer [Not Recovered/Not Resolved]
  - Off label use [Unknown]
